FAERS Safety Report 9033684 (Version 1)
Quarter: 2013Q1

REPORT INFORMATION
  Report Type: Spontaneous
  Country: US (occurrence: US)
  Receive Date: 20130128
  Receipt Date: 20130128
  Transmission Date: 20140127
  Serious: Yes (Other)
  Sender: FDA-Public Use
  Company Number: US-AMGEN-USASP2012078263

PATIENT
  Age: 58 Year
  Sex: Female

DRUGS (2)
  1. ENBREL [Suspect]
     Indication: PSORIATIC ARTHROPATHY
     Dosage: 50 MG, QWK
     Dates: start: 20120901, end: 20121024
  2. MEDROL                             /00049601/ [Concomitant]
     Dosage: UNK

REACTIONS (11)
  - Pericardial effusion [Not Recovered/Not Resolved]
  - Pleurisy [Not Recovered/Not Resolved]
  - Pericarditis [Not Recovered/Not Resolved]
  - Memory impairment [Not Recovered/Not Resolved]
  - Bone pain [Not Recovered/Not Resolved]
  - Oedema peripheral [Not Recovered/Not Resolved]
  - Pain in extremity [Not Recovered/Not Resolved]
  - Musculoskeletal stiffness [Not Recovered/Not Resolved]
  - Pallor [Not Recovered/Not Resolved]
  - Viral infection [Not Recovered/Not Resolved]
  - Sinusitis [Not Recovered/Not Resolved]
